FAERS Safety Report 12882588 (Version 1)
Quarter: 2016Q4

REPORT INFORMATION
  Report Type: Spontaneous
  Country: ES (occurrence: ES)
  Receive Date: 20161025
  Receipt Date: 20161025
  Transmission Date: 20170207
  Serious: No
  Sender: FDA-Public Use
  Company Number: ES-TOLMAR, INC.-2016ES000672

PATIENT
  Age: 72 Year
  Sex: Male

DRUGS (7)
  1. VALIUM [Concomitant]
     Active Substance: DIAZEPAM
     Route: 065
  2. ELIGARD [Suspect]
     Active Substance: LEUPROLIDE ACETATE
     Indication: PROSTATE CANCER
     Dosage: 45 MG, DAILY
     Route: 058
     Dates: start: 20151230
  3. ADALAT [Concomitant]
     Active Substance: NIFEDIPINE
     Route: 065
  4. OMEPRAZOLE. [Concomitant]
     Active Substance: OMEPRAZOLE
     Route: 065
  5. ACOXXEL [Concomitant]
     Active Substance: ETORICOXIB
     Route: 065
  6. CAPTOPRIL. [Concomitant]
     Active Substance: CAPTOPRIL
     Route: 065
  7. PARACETAMOL [Concomitant]
     Active Substance: ACETAMINOPHEN
     Route: 065

REACTIONS (1)
  - Drug administration error [Unknown]

NARRATIVE: CASE EVENT DATE: 20151230
